FAERS Safety Report 7428732-1 (Version None)
Quarter: 2011Q2

REPORT INFORMATION
  Report Type: 
  Country: None (occurrence: None)
  Receive Date: 20110421
  Receipt Date: 20110415
  Transmission Date: 20111010
  Serious: No
  Sender: FDA-Public Use
  Company Number: US-B.I. PHARMACEUTICALS,INC./RIDGEFIELD-2011-BP-08644BP

PATIENT
  Sex: Male

DRUGS (13)
  1. PRADAXA [Suspect]
     Indication: CEREBROVASCULAR ACCIDENT
     Dosage: 300 MG
  2. NORVASC [Concomitant]
  3. DIAZIDE [Concomitant]
  4. FENTNOL PATCH [Concomitant]
  5. OXYCODONE HCL [Concomitant]
  6. KLOR-CON [Concomitant]
  7. CYMBALTA [Concomitant]
  8. LISINOPRIL [Concomitant]
  9. ZOCOR [Concomitant]
  10. PRADAXA [Suspect]
     Indication: ATRIAL FIBRILLATION
  11. VITAMIN D [Concomitant]
  12. LOPRESSOR [Concomitant]
  13. WARFIN [Concomitant]

REACTIONS (4)
  - DIARRHOEA [None]
  - DEHYDRATION [None]
  - VOMITING [None]
  - WEIGHT DECREASED [None]
